FAERS Safety Report 12654277 (Version 1)
Quarter: 2016Q3

REPORT INFORMATION
  Report Type: Spontaneous
  Country: US (occurrence: US)
  Receive Date: 20160816
  Receipt Date: 20160816
  Transmission Date: 20161109
  Serious: No
  Sender: FDA-Public Use
  Company Number: US-BEH-2016072287

PATIENT
  Sex: Female
  Weight: 152.83 kg

DRUGS (28)
  1. DIPHENHYDRAMINE. [Concomitant]
     Active Substance: DIPHENHYDRAMINE
  2. MIRALAX [Concomitant]
     Active Substance: POLYETHYLENE GLYCOL 3350
  3. LORAZEPAM. [Concomitant]
     Active Substance: LORAZEPAM
  4. METOCLOPRAMIDE. [Concomitant]
     Active Substance: METOCLOPRAMIDE
  5. METFORMIN [Concomitant]
     Active Substance: METFORMIN HYDROCHLORIDE
  6. VITAMIN B2                         /00154901/ [Concomitant]
  7. PROMETHAZINE [Concomitant]
     Active Substance: PROMETHAZINE\PROMETHAZINE HYDROCHLORIDE
  8. MOTRIN [Concomitant]
     Active Substance: IBUPROFEN
  9. DDAVP [Concomitant]
     Active Substance: DESMOPRESSIN ACETATE
  10. ADVAIR HFA [Concomitant]
     Active Substance: FLUTICASONE PROPIONATE\SALMETEROL XINAFOATE
  11. PREDNISONE. [Concomitant]
     Active Substance: PREDNISONE
  12. SERTRALINE [Concomitant]
     Active Substance: SERTRALINE HYDROCHLORIDE
  13. HIZENTRA [Suspect]
     Active Substance: HUMAN IMMUNOGLOBULIN G
     Indication: HYPOGAMMAGLOBULINAEMIA
     Dosage: 12 G, QW
     Route: 058
     Dates: start: 20101129
  14. LIDOCAINE/PRILOCAINE [Concomitant]
     Active Substance: LIDOCAINE\PRILOCAINE
  15. EPIPEN [Concomitant]
     Active Substance: EPINEPHRINE
  16. CEFDINIR. [Concomitant]
     Active Substance: CEFDINIR
  17. LISINOPRIL. [Concomitant]
     Active Substance: LISINOPRIL
  18. SPRINTEC [Concomitant]
     Active Substance: ETHINYL ESTRADIOL\NORGESTIMATE
  19. FLONASE [Concomitant]
     Active Substance: FLUTICASONE PROPIONATE
  20. ONDANSETRON [Concomitant]
     Active Substance: ONDANSETRON
  21. CLONIDINE. [Concomitant]
     Active Substance: CLONIDINE
  22. ABILIFY [Concomitant]
     Active Substance: ARIPIPRAZOLE
  23. ACETAMINOPHEN. [Concomitant]
     Active Substance: ACETAMINOPHEN
  24. TRAZODONE [Concomitant]
     Active Substance: TRAZODONE HYDROCHLORIDE
  25. NITROFURANTOIN. [Concomitant]
     Active Substance: NITROFURANTOIN
  26. OMEPRAZOLE. [Concomitant]
     Active Substance: OMEPRAZOLE
  27. VITAMIN C [Concomitant]
     Active Substance: ASCORBIC ACID
  28. ALBUTEROL                          /00139501/ [Concomitant]
     Active Substance: ALBUTEROL

REACTIONS (1)
  - Cystitis [Unknown]
